FAERS Safety Report 24415046 (Version 2)
Quarter: 2024Q4

REPORT INFORMATION
  Report Type: Spontaneous
  Country: US (occurrence: US)
  Receive Date: 20241009
  Receipt Date: 20241017
  Transmission Date: 20250115
  Serious: Yes (Life-Threatening, Hospitalization, Other)
  Sender: ALKEM
  Company Number: None

PATIENT
  Age: 14 Year
  Sex: Male
  Weight: 101.5 kg

DRUGS (5)
  1. IBUPROFEN [Suspect]
     Active Substance: IBUPROFEN
     Indication: Abdominal pain
     Dosage: UNK (TABLET)
     Route: 048
  2. ASPIRIN [Suspect]
     Active Substance: ASPIRIN
     Indication: Product used for unknown indication
     Dosage: 15 TO 20 (TABLET)
     Route: 048
  3. MELOXICAM [Suspect]
     Active Substance: MELOXICAM
     Indication: Product used for unknown indication
     Dosage: 2 DOSAGE FORM (TABLET)
     Route: 048
  4. DEXTROAMPHETAMINE [Suspect]
     Active Substance: DEXTROAMPHETAMINE
     Indication: Product used for unknown indication
     Dosage: 30 DOSAGE FORM (TABLET)
     Route: 048
  5. NICARDIPINE [Concomitant]
     Active Substance: NICARDIPINE
     Indication: Blood pressure increased
     Dosage: UNK (DRIP)
     Route: 042

REACTIONS (7)
  - Ileal ulcer [Unknown]
  - Suicide attempt [Unknown]
  - Hypokalaemia [Unknown]
  - Metabolic alkalosis [Unknown]
  - Gastric ulcer [Unknown]
  - Analgesic drug level increased [Unknown]
  - Intentional overdose [Unknown]
